FAERS Safety Report 7141374-0 (Version None)
Quarter: 2010Q4

REPORT INFORMATION
  Report Type: 
  Country: None (occurrence: None)
  Receive Date: 20101207
  Receipt Date: 20101130
  Transmission Date: 20110411
  Serious: Yes (Death)
  Sender: FDA-Public Use
  Company Number: FR-ELI_LILLY_AND_COMPANY-FR201012000936

PATIENT
  Age: 40 Year
  Sex: Female

DRUGS (2)
  1. BYETTA [Suspect]
     Indication: TYPE 2 DIABETES MELLITUS
     Dosage: 10 UG, 2/D
     Route: 058
     Dates: start: 20090201, end: 20090501
  2. EFFERALGAN CODEINE [Concomitant]

REACTIONS (5)
  - ABDOMINAL PAIN [None]
  - DEATH [None]
  - DIARRHOEA [None]
  - NAUSEA [None]
  - VOMITING [None]
